FAERS Safety Report 21280971 (Version 5)
Quarter: 2022Q4

REPORT INFORMATION
  Report Type: Report from Study
  Country: FR (occurrence: None)
  Receive Date: 20220901
  Receipt Date: 20221227
  Transmission Date: 20230113
  Serious: Yes (Hospitalization)
  Sender: FDA-Public Use
  Company Number: FR-Eisai Medical Research-EC-2022-122309

PATIENT
  Age: 82 Year
  Sex: Male
  Weight: 62 kg

DRUGS (12)
  1. LENVATINIB [Suspect]
     Active Substance: LENVATINIB
     Indication: Ductal adenocarcinoma of pancreas
     Dosage: STARTING DOSE AT 20 MG, FLUCTUATED DOSAGE
     Route: 048
     Dates: start: 20220726, end: 20220823
  2. LENVATINIB [Suspect]
     Active Substance: LENVATINIB
     Route: 048
     Dates: start: 20220829
  3. PEMBROLIZUMAB [Suspect]
     Active Substance: PEMBROLIZUMAB
     Indication: Ductal adenocarcinoma of pancreas
     Route: 042
     Dates: start: 20220726, end: 20220726
  4. PEMBROLIZUMAB [Suspect]
     Active Substance: PEMBROLIZUMAB
     Route: 042
     Dates: start: 20220906
  5. BELZUTIFAN [Suspect]
     Active Substance: BELZUTIFAN
     Indication: Ductal adenocarcinoma of pancreas
     Dosage: STARTING DOSE AT 120 MILLIGRAM, FLUCTUATED DOSAGE
     Route: 048
     Dates: start: 20220726, end: 20220823
  6. BELZUTIFAN [Suspect]
     Active Substance: BELZUTIFAN
     Route: 048
     Dates: start: 20220829
  7. ACETAMINOPHEN [Concomitant]
     Active Substance: ACETAMINOPHEN
     Dates: start: 202106
  8. PENICILLIN V [Concomitant]
     Active Substance: PENICILLIN V
     Dates: start: 202106
  9. SOTALOL [Concomitant]
     Active Substance: SOTALOL
     Dates: start: 202201, end: 20220824
  10. CAPTOPRIL [Concomitant]
     Active Substance: CAPTOPRIL
     Dates: start: 202201, end: 20220827
  11. AMLODIPINE BESYLATE [Concomitant]
     Active Substance: AMLODIPINE BESYLATE
     Dates: start: 202203, end: 20220824
  12. MICROLAX [SODIUM CITRATE;SODIUM LAURYL SULFOACETATE] [Concomitant]
     Dates: start: 202208, end: 202208

REACTIONS (1)
  - General physical health deterioration [Recovered/Resolved]

NARRATIVE: CASE EVENT DATE: 20220823
